FAERS Safety Report 6659809-6 (Version None)
Quarter: 2010Q1

REPORT INFORMATION
  Report Type: 
  Country: None (occurrence: None)
  Receive Date: 20100330
  Receipt Date: 20100323
  Transmission Date: 20100710
  Serious: Yes (Death)
  Sender: FDA-Public Use
  Company Number: US-GILEAD-2010-0028067

PATIENT
  Sex: Female
  Weight: 59.474 kg

DRUGS (14)
  1. LETAIRIS [Suspect]
     Indication: PULMONARY ARTERIAL HYPERTENSION
     Route: 048
     Dates: start: 20090408, end: 20100311
  2. COUMADIN [Concomitant]
  3. LASIX [Concomitant]
  4. DIGOXIN [Concomitant]
  5. SINGULAIR [Concomitant]
  6. VISTARIL [Concomitant]
  7. REQUIP [Concomitant]
  8. PREMARIN [Concomitant]
  9. ZYRTEC [Concomitant]
  10. MIDRIN [Concomitant]
  11. NEXIUM [Concomitant]
  12. POTASSIUM CHLORIDE [Concomitant]
  13. FEOSOL [Concomitant]
  14. ATIVAN [Concomitant]

REACTIONS (2)
  - PULMONARY HYPERTENSION [None]
  - RESPIRATORY FAILURE [None]
